FAERS Safety Report 13777170 (Version 1)
Quarter: 2017Q3

REPORT INFORMATION
  Report Type: Spontaneous
  Country: US (occurrence: US)
  Receive Date: 20170721
  Receipt Date: 20170721
  Transmission Date: 20171127
  Serious: Yes (Death)
  Sender: FDA-Public Use
  Company Number: None

PATIENT
  Sex: Male

DRUGS (15)
  1. SERTRALINE [Concomitant]
     Active Substance: SERTRALINE HYDROCHLORIDE
  2. SPIRIVA [Concomitant]
     Active Substance: TIOTROPIUM BROMIDE MONOHYDRATE
  3. OXYCODONE [Concomitant]
     Active Substance: OXYCODONE
  4. AMIODARONE [Concomitant]
     Active Substance: AMIODARONE
  5. ELIQUIS [Concomitant]
     Active Substance: APIXABAN
  6. LONSURF [Suspect]
     Active Substance: TIPIRACIL HYDROCHLORIDE\TRIFLURIDINE
     Indication: LUNG NEOPLASM MALIGNANT
     Route: 048
     Dates: start: 2017
  7. CULTURELLE [Concomitant]
     Active Substance: LACTOBACILLUS RHAMNOSUS
  8. LIDOCAINE. [Concomitant]
     Active Substance: LIDOCAINE
  9. LOSARTAN POT [Concomitant]
     Active Substance: LOSARTAN POTASSIUM
  10. VITAMIN C [Concomitant]
     Active Substance: ASCORBIC ACID
  11. VENTOLIN HFA [Concomitant]
     Active Substance: ALBUTEROL SULFATE
  12. FLUCONAZOLE. [Concomitant]
     Active Substance: FLUCONAZOLE
  13. PANTOPRAZOLE [Concomitant]
     Active Substance: PANTOPRAZOLE
  14. VITAMIN D [Concomitant]
     Active Substance: CHOLECALCIFEROL
  15. LONSURF [Suspect]
     Active Substance: TIPIRACIL HYDROCHLORIDE\TRIFLURIDINE
     Indication: LUNG NEOPLASM MALIGNANT
     Route: 048
     Dates: start: 2017

REACTIONS (1)
  - Death [None]
